FAERS Safety Report 8862540 (Version 1)
Quarter: 2012Q4

REPORT INFORMATION
  Report Type: 
  Country: BR (occurrence: BR)
  Receive Date: 20121026
  Receipt Date: 20121026
  Transmission Date: 20130627
  Serious: Yes (Hospitalization)
  Sender: FDA-Public Use
  Company Number: BR-ELI_LILLY_AND_COMPANY-BR201210004728

PATIENT
  Age: 53 Year
  Sex: Male
  Weight: 89 kg

DRUGS (1)
  1. CIALIS [Suspect]
     Indication: PROSTATE CANCER
     Dosage: 20 mg, qd
     Route: 048
     Dates: start: 20120925

REACTIONS (4)
  - Prostate cancer [Unknown]
  - Blood pressure increased [Unknown]
  - Cold sweat [Unknown]
  - Off label use [Unknown]
